FAERS Safety Report 12576302 (Version 2)
Quarter: 2016Q3

REPORT INFORMATION
  Report Type: Spontaneous
  Country: SI (occurrence: SI)
  Receive Date: 20160720
  Receipt Date: 20160720
  Transmission Date: 20161109
  Serious: Yes (Life-Threatening, Hospitalization, Other)
  Sender: FDA-Public Use
  Company Number: SI-WATSON-2016-15775

PATIENT
  Age: 19 Year
  Sex: Female

DRUGS (3)
  1. BROMAZEPAM (UNKNOWN) [Concomitant]
     Active Substance: BROMAZEPAM
     Indication: SUICIDE ATTEMPT
     Dosage: 45 MG, SINGLE
     Route: 048
  2. QUETIAPINE (UNKNOWN) [Suspect]
     Active Substance: QUETIAPINE
     Indication: SUICIDE ATTEMPT
     Dosage: 6000 MG
     Route: 048
  3. CITALOPRAM [Suspect]
     Active Substance: CITALOPRAM HYDROBROMIDE
     Indication: SUICIDE ATTEMPT
     Dosage: 400 MG, SINGLE
     Route: 048

REACTIONS (7)
  - Status epilepticus [Recovered/Resolved]
  - Mydriasis [Unknown]
  - Hypokalaemia [Unknown]
  - Ventricular tachycardia [Recovered/Resolved]
  - Bundle branch block right [Recovered/Resolved]
  - Electrocardiogram QT prolonged [Recovered/Resolved]
  - Coma scale abnormal [Recovered/Resolved]
